FAERS Safety Report 9399254 (Version 6)
Quarter: 2013Q3

REPORT INFORMATION
  Report Type: Spontaneous
  Country: DE (occurrence: None)
  Receive Date: 20130710
  Receipt Date: 20130903
  Transmission Date: 20140515
  Serious: Yes (Death, Life-Threatening, Hospitalization, Other)
  Sender: FDA-Public Use
  Company Number: 2013MPI00399

PATIENT
  Age: 87 Year
  Sex: Female

DRUGS (1)
  1. ADCETRIS [Suspect]
     Indication: HODGKIN^S DISEASE
     Route: 042
     Dates: start: 20130304, end: 20130618

REACTIONS (19)
  - Melaena [None]
  - Peripheral sensory neuropathy [None]
  - Dysphagia [None]
  - Anaemia [None]
  - Candida infection [None]
  - Thrombocytopenia [None]
  - Decreased appetite [None]
  - Anaemia [None]
  - Candida infection [None]
  - Dysphagia [None]
  - Decreased appetite [None]
  - General physical health deterioration [None]
  - Fatigue [None]
  - Febrile neutropenia [None]
  - Melaena [None]
  - Gastrointestinal haemorrhage [None]
  - Leukopenia [None]
  - Hypokalaemia [None]
  - Dehydration [None]
